FAERS Safety Report 5474600-4 (Version None)
Quarter: 2007Q4

REPORT INFORMATION
  Report Type: 
  Country: None (occurrence: None)
  Receive Date: 20071002
  Receipt Date: 20070928
  Transmission Date: 20080405
  Serious: Yes (Death)
  Sender: FDA-Public Use
  Company Number: JP-ASTRAZENECA-2007AP05455

PATIENT
  Age: 31212 Day
  Sex: Male

DRUGS (6)
  1. ZOLADEX [Suspect]
     Indication: PROSTATE CANCER
     Route: 058
     Dates: start: 20070625, end: 20070724
  2. AMLODIPINE [Concomitant]
     Route: 048
  3. PRAMIEL [Concomitant]
     Route: 048
     Dates: start: 20070501
  4. SORELMON [Concomitant]
     Route: 048
     Dates: start: 20070501
  5. SELBEX [Concomitant]
     Indication: GASTRITIS
     Route: 048
     Dates: start: 20070501
  6. OCEFAZINE [Concomitant]
     Route: 048
     Dates: start: 20070501

REACTIONS (2)
  - HEPATIC FUNCTION ABNORMAL [None]
  - OEDEMA PERIPHERAL [None]
